FAERS Safety Report 17101569 (Version 2)
Quarter: 2019Q4

REPORT INFORMATION
  Report Type: Report from Study
  Country: DE (occurrence: DK)
  Receive Date: 20191202
  Receipt Date: 20191227
  Transmission Date: 20200122
  Serious: Yes (Hospitalization)
  Sender: FDA-Public Use
  Company Number: DK-BAYER-2019-209880

PATIENT
  Sex: Female
  Weight: 45 kg

DRUGS (14)
  1. STIVARGA [Suspect]
     Active Substance: REGORAFENIB
     Indication: HEPATOCELLULAR CARCINOMA
     Dosage: DAILY DOSE 120 MG
     Dates: start: 20191029, end: 20191107
  2. LAKTULOSE [Concomitant]
     Indication: HEPATIC FAILURE
     Dosage: 1 PACKAGE TWICE PER DAY
     Dates: start: 20191107, end: 20191111
  3. STIVARGA [Suspect]
     Active Substance: REGORAFENIB
     Indication: HEPATOCELLULAR CARCINOMA
     Dosage: DAILY DOSE 80 MG
     Dates: start: 20191023
  4. GANGIDEN [Concomitant]
     Indication: HEPATIC FAILURE
     Dosage: 2 PACKAGE, DAILY
     Dates: start: 20191111
  5. SURLID [Concomitant]
     Active Substance: ROXITHROMYCIN
     Indication: PNEUMONITIS
     Dosage: 150 MG, BID
     Dates: start: 20191212, end: 20191215
  6. GLUCOSE [Concomitant]
     Active Substance: DEXTROSE
     Indication: HEPATIC FAILURE
     Dosage: 1 L, DAILY
     Dates: start: 20191108, end: 20191109
  7. TAZOCIN [Concomitant]
     Active Substance: PIPERACILLIN SODIUM\TAZOBACTAM SODIUM
     Indication: PNEUMONITIS
     Dosage: 4 G, QID
     Dates: start: 20191216
  8. NATRIUMCHLORIDE [Concomitant]
     Active Substance: SODIUM CHLORIDE
     Indication: HEPATIC FAILURE
     Dosage: 1 L, DAILY
     Dates: start: 20191107, end: 20191109
  9. STIVARGA [Suspect]
     Active Substance: REGORAFENIB
     Indication: HEPATOCELLULAR CARCINOMA
     Dosage: DAILY DOSE 80 MG
     Dates: start: 20191119
  10. NATRIUMCHLORIDE [Concomitant]
     Active Substance: SODIUM CHLORIDE
     Indication: HEPATIC FAILURE
     Dosage: 1 L, BID
     Dates: start: 20191110, end: 20191111
  11. MORPHINE [Concomitant]
     Active Substance: MORPHINE
     Indication: PAIN
     Dosage: 5 MG, PRN
     Dates: start: 20190710
  12. PARACETAMOL [Concomitant]
     Active Substance: ACETAMINOPHEN
     Indication: PAIN
     Dosage: 6000 MG, PRN
     Dates: start: 20190304
  13. MORPHINE [Concomitant]
     Active Substance: MORPHINE
     Indication: PAIN
     Dosage: 10 MG, BID
     Dates: start: 20191112
  14. STIVARGA [Suspect]
     Active Substance: REGORAFENIB
     Indication: HEPATOCELLULAR CARCINOMA
     Dosage: DAILY DOSE 80 MG
     Dates: start: 20191112

REACTIONS (3)
  - Hepatic failure [Recovered/Resolved]
  - Dehydration [Recovered/Resolved]
  - Pneumonitis [Recovering/Resolving]

NARRATIVE: CASE EVENT DATE: 20191107
